FAERS Safety Report 14738146 (Version 1)
Quarter: 2018Q2

REPORT INFORMATION
  Report Type: Spontaneous
  Country: US (occurrence: US)
  Receive Date: 20180409
  Receipt Date: 20180409
  Transmission Date: 20180711
  Serious: No
  Sender: FDA-Public Use
  Company Number: US-MYLANLABS-2018M1017117

PATIENT
  Age: 48 Year
  Sex: Female
  Weight: 94 kg

DRUGS (2)
  1. LIDOCAINE PATCH [Suspect]
     Active Substance: LIDOCAINE
     Indication: PAIN IN EXTREMITY
     Dosage: 5 %, UNK
     Route: 003
     Dates: start: 20180310
  2. LIDOCAINE PATCH [Suspect]
     Active Substance: LIDOCAINE
     Dosage: UNK
     Route: 003

REACTIONS (3)
  - Drug ineffective [Not Recovered/Not Resolved]
  - Product quality issue [Unknown]
  - Product adhesion issue [Not Recovered/Not Resolved]

NARRATIVE: CASE EVENT DATE: 20180311
